FAERS Safety Report 6452362-1 (Version None)
Quarter: 2009Q4

REPORT INFORMATION
  Report Type: 
  Country: None (occurrence: None)
  Receive Date: 20091123
  Receipt Date: 20090203
  Transmission Date: 20100525
  Serious: No
  Sender: FDA-Public Use
  Company Number: US-AMGEN-KDL330714

PATIENT
  Sex: Female
  Weight: 69 kg

DRUGS (7)
  1. ENBREL [Suspect]
     Indication: RHEUMATOID ARTHRITIS
     Route: 058
     Dates: start: 20080408
  2. SERTRALINE HYDROCHLORIDE [Concomitant]
  3. IMURAN [Concomitant]
  4. KCL-ZYMA [Concomitant]
  5. IMIPRAMINE HYDROCHLORIDE [Concomitant]
  6. PREDNISONE [Concomitant]
  7. ARAVA [Concomitant]

REACTIONS (1)
  - BRONCHITIS [None]
